FAERS Safety Report 14600087 (Version 2)
Quarter: 2020Q2

REPORT INFORMATION
  Report Type: Report from Study
  Country: RO (occurrence: RO)
  Receive Date: 20180305
  Receipt Date: 20200629
  Transmission Date: 20200713
  Serious: Yes (Life-Threatening, Hospitalization)
  Sender: FDA-Public Use
  Company Number: RO-JNJFOC-20180113927

PATIENT
  Age: 63 Year
  Sex: Male
  Weight: 54 kg

DRUGS (12)
  1. SINGULAIR [Concomitant]
     Active Substance: MONTELUKAST SODIUM
     Dosage: 10 MILLIGRAM
     Route: 048
     Dates: start: 20171208
  2. NACL [Concomitant]
     Active Substance: SODIUM CHLORIDE
     Dosage: 250- 500 MILLILITRE
     Dates: start: 20171220
  3. CARFILZOMIB [Suspect]
     Active Substance: CARFILZOMIB
     Indication: PLASMA CELL MYELOMA
     Dosage: 56 MILLIGRAM, PER CHEMO REGIM
     Route: 042
     Dates: start: 20171211
  4. FENTANYL. [Concomitant]
     Active Substance: FENTANYL
     Dosage: 100 MILLIGRAM
     Dates: start: 201710, end: 20180330
  5. ALGOCALMIN [Concomitant]
     Active Substance: METAMIZOLE SODIUM
     Dosage: 1 UNK
     Dates: start: 20171101, end: 20180330
  6. CLARITINE [Concomitant]
     Active Substance: LORATADINE
     Dosage: 20 MILLIGRAM
     Route: 048
     Dates: start: 20171219
  7. DARATUMUMAB [Suspect]
     Active Substance: DARATUMUMAB
     Indication: PLASMA CELL MYELOMA
     Dosage: 864 MILLIGRAM, PER CHEMO REGIM
     Route: 042
     Dates: start: 20171211
  8. DEXAMETHASONE. [Concomitant]
     Active Substance: DEXAMETHASONE
     Indication: PLASMA CELL MYELOMA
     Dosage: 20-40 MILLIGRAM
     Dates: start: 20171219
  9. XEFO [Concomitant]
     Active Substance: LORNOXICAM
     Dosage: 8 MILLIGRAM
     Dates: start: 201711, end: 20180330
  10. CONTROLOC [Concomitant]
     Active Substance: PANTOPRAZOLE SODIUM
     Dosage: 40 MILLIGRAM
     Dates: start: 201709, end: 20180330
  11. PARACETAMOL [Concomitant]
     Active Substance: ACETAMINOPHEN
     Dosage: 1000 MILLIGRAM
     Route: 048
     Dates: start: 20171211
  12. PARACETAMOLUM [Concomitant]
     Active Substance: ACETAMINOPHEN
     Dosage: 1000 MILLIGRAM
     Route: 048
     Dates: start: 20171212

REACTIONS (2)
  - Upper gastrointestinal haemorrhage [Recovered/Resolved]
  - Haemoglobin abnormal [Recovered/Resolved]

NARRATIVE: CASE EVENT DATE: 20180108
